FAERS Safety Report 9905105 (Version 2)
Quarter: 2015Q3

REPORT INFORMATION
  Report Type: Spontaneous
  Country: US (occurrence: US)
  Receive Date: 20140218
  Receipt Date: 20150811
  Transmission Date: 20151125
  Serious: No
  Sender: FDA-Public Use
  Company Number: US-GILEAD-2012-0051711

PATIENT
  Age: 51 Year
  Sex: Male

DRUGS (2)
  1. LETAIRIS [Suspect]
     Active Substance: AMBRISENTAN
     Indication: PULMONARY HYPERTENSION
     Dosage: 5 MG, UNK
     Route: 048
     Dates: start: 20101118
  2. TYVASO [Concomitant]
     Active Substance: TREPROSTINIL

REACTIONS (9)
  - Chest pain [Unknown]
  - Nasopharyngitis [Unknown]
  - Fall [Unknown]
  - Hypertension [Unknown]
  - Dizziness [Unknown]
  - Pallor [Unknown]
  - Vertigo [Unknown]
  - Gastroenteritis viral [Unknown]
  - Muscular weakness [Unknown]

NARRATIVE: CASE EVENT DATE: 201201
